FAERS Safety Report 9015696 (Version 1)
Quarter: 2013Q1

REPORT INFORMATION
  Report Type: Spontaneous
  Country: FR (occurrence: None)
  Receive Date: 20130102
  Receipt Date: 20130102
  Transmission Date: 20140127
  Serious: Yes (Hospitalization)
  Sender: FDA-Public Use
  Company Number: DSA_61603_2012

PATIENT
  Age: 14 Year
  Sex: Male

DRUGS (2)
  1. FLAGYL [Suspect]
     Indication: PRODUCT USED FOR UNKNOWN INDICATION
     Route: 042
     Dates: start: 20121112, end: 20121114
  2. DALACIN [Suspect]
     Indication: PRODUCT USED FOR UNKNOWN INDICATION
     Route: 042
     Dates: start: 20121112, end: 20121114

REACTIONS (3)
  - Vomiting [None]
  - Accidental overdose [None]
  - Incorrect dose administered [None]
